FAERS Safety Report 9670989 (Version 1)
Quarter: 2013Q4

REPORT INFORMATION
  Report Type: Spontaneous
  Country: US (occurrence: US)
  Receive Date: 20131106
  Receipt Date: 20131106
  Transmission Date: 20140711
  Serious: Yes (Death, Other)
  Sender: FDA-Public Use
  Company Number: US-SA-2013SA112439

PATIENT
  Sex: Female

DRUGS (3)
  1. PLAVIX [Suspect]
     Route: 065
  2. ASPIRIN [Suspect]
     Indication: CEREBROVASCULAR ACCIDENT
     Route: 065
  3. ELIQUIS [Suspect]
     Indication: CEREBROVASCULAR ACCIDENT
     Route: 065

REACTIONS (4)
  - Haemorrhage [Fatal]
  - Cardiac disorder [Unknown]
  - Atrial fibrillation [Unknown]
  - Cerebrovascular accident [Unknown]
